FAERS Safety Report 10301215 (Version 2)
Quarter: 2014Q3

REPORT INFORMATION
  Report Type: Spontaneous
  Country: DE (occurrence: DE)
  Receive Date: 20140714
  Receipt Date: 20140822
  Transmission Date: 20150326
  Serious: Yes (Hospitalization)
  Sender: FDA-Public Use
  Company Number: DE-AMGEN-DEUSP2014051854

PATIENT
  Age: 66 Year
  Sex: Female

DRUGS (6)
  1. XGEVA [Suspect]
     Active Substance: DENOSUMAB
     Indication: NEOPLASM MALIGNANT
     Dosage: 102 MG, UNK
     Route: 058
     Dates: start: 201301, end: 201306
  2. TAVEGIL                            /00137201/ [Concomitant]
     Active Substance: CLEMASTINE FUMARATE
     Route: 042
  3. XGEVA [Suspect]
     Active Substance: DENOSUMAB
     Indication: METASTASES TO BONE
  4. TAXOL [Concomitant]
     Active Substance: PACLITAXEL
     Indication: SMALL INTESTINE CARCINOMA
     Dosage: 80, QWK
     Route: 042
     Dates: start: 201301, end: 201306
  5. FORTECORTIN                        /00016001/ [Concomitant]
     Active Substance: DEXAMETHASONE
  6. ONDANSETRON [Concomitant]
     Active Substance: ONDANSETRON

REACTIONS (1)
  - Erysipelas [Recovered/Resolved]

NARRATIVE: CASE EVENT DATE: 201305
